FAERS Safety Report 13638994 (Version 1)
Quarter: 2017Q2

REPORT INFORMATION
  Report Type: Spontaneous
  Country: AR (occurrence: AR)
  Receive Date: 20170609
  Receipt Date: 20170609
  Transmission Date: 20170830
  Serious: Yes (Other)
  Sender: FDA-Public Use
  Company Number: AR-BAYER-2017-104666

PATIENT
  Age: 52 Year
  Sex: Male

DRUGS (4)
  1. REGORAFENIB [Suspect]
     Active Substance: REGORAFENIB
     Indication: METASTASES TO LIVER
     Dosage: DAILY DOSE 120 MG
     Dates: end: 201608
  2. DEXAMETHASONE. [Concomitant]
     Active Substance: DEXAMETHASONE
     Dosage: DAILY DOSE 2 MG
     Dates: start: 201510
  3. REGORAFENIB [Suspect]
     Active Substance: REGORAFENIB
     Indication: ADENOCARCINOMA OF COLON
     Dosage: DAILY DOSE 160 MG
     Dates: start: 201510
  4. REGORAFENIB [Suspect]
     Active Substance: REGORAFENIB
     Indication: METASTASES TO LUNG

REACTIONS (12)
  - Skin toxicity [Recovered/Resolved]
  - Aspartate aminotransferase increased [Recovered/Resolved]
  - Diarrhoea [Recovered/Resolved]
  - Diarrhoea [Unknown]
  - Alanine aminotransferase increased [Recovered/Resolved]
  - Palmar-plantar erythrodysaesthesia syndrome [Unknown]
  - Abdominal lymphadenopathy [Unknown]
  - Palmar-plantar erythrodysaesthesia syndrome [Recovered/Resolved]
  - Hypertension [Recovered/Resolved]
  - Alanine aminotransferase increased [Unknown]
  - Abdominal pain [Unknown]
  - Aspartate aminotransferase increased [Unknown]
